FAERS Safety Report 7155894-6 (Version None)
Quarter: 2010Q4

REPORT INFORMATION
  Report Type: 
  Country: None (occurrence: None)
  Receive Date: 20101214
  Receipt Date: 20101210
  Transmission Date: 20110411
  Serious: Yes (Hospitalization)
  Sender: FDA-Public Use
  Company Number: PL-BRISTOL-MYERS SQUIBB COMPANY-15436959

PATIENT
  Age: 67 Year
  Sex: Female
  Weight: 78 kg

DRUGS (8)
  1. ABILIFY [Suspect]
     Indication: SCHIZOPHRENIA, PARANOID TYPE
     Route: 048
     Dates: start: 20101025, end: 20101121
  2. BETAHISTINE DIHYDROCHLORIDE [Concomitant]
  3. DEPAKENE [Concomitant]
  4. BISOCARD [Concomitant]
     Dosage: HALF TAB
  5. AGAPURIN [Concomitant]
     Dosage: 1 TAB
  6. VEROSPIRON [Concomitant]
     Dosage: 1 TAB
  7. MILURIT [Concomitant]
     Dosage: 1 TAB
  8. SIMVASTEROL [Concomitant]
     Dosage: 1 TAB

REACTIONS (1)
  - EPISTAXIS [None]
